FAERS Safety Report 8616362-5 (Version None)
Quarter: 2012Q3

REPORT INFORMATION
  Report Type: 
  Country: None (occurrence: None)
  Receive Date: 20120823
  Receipt Date: 20120822
  Transmission Date: 20120928
  Serious: No
  Sender: FDA-Public Use
  Company Number: US-MYLANLABS-2012S1015355

PATIENT
  Age: 35 Year
  Sex: Female
  Weight: 58.97 kg

DRUGS (1)
  1. BUDESONIDE [Suspect]
     Indication: COLITIS MICROSCOPIC
     Route: 048
     Dates: start: 20120402, end: 20120719

REACTIONS (5)
  - CONDITION AGGRAVATED [None]
  - ABDOMINAL PAIN [None]
  - METRORRHAGIA [None]
  - DIARRHOEA [None]
  - DRUG INEFFECTIVE [None]
